FAERS Safety Report 9391612 (Version 1)
Quarter: 2013Q3

REPORT INFORMATION
  Report Type: Spontaneous
  Country: JP (occurrence: JP)
  Receive Date: 20130709
  Receipt Date: 20130709
  Transmission Date: 20140515
  Serious: No
  Sender: FDA-Public Use
  Company Number: JP-SUCAMPO PHARMA AMERICAS, INC-SPI201300489

PATIENT
  Age: 40 Year
  Sex: Female

DRUGS (8)
  1. AMITIZA [Suspect]
     Indication: CONSTIPATION
     Dosage: 24 MCG, UNK
     Route: 048
     Dates: start: 20130603
  2. HICEE [Concomitant]
     Route: 048
  3. LITIOMAL [Concomitant]
     Dosage: 100 MG, UNK
     Route: 048
  4. RISPERIDONE [Concomitant]
     Dosage: 1 MG, UNK
     Route: 048
  5. PAXIL [Concomitant]
     Dosage: 10 MG, UNK
     Route: 048
  6. CYSVON [Concomitant]
     Dosage: 5 MG, UNK
     Route: 048
  7. QUAZEPAM [Concomitant]
     Dosage: 15 MG, UNK
     Route: 048
  8. HIRNAMIN [Concomitant]
     Dosage: 5 MG, UNK
     Route: 048

REACTIONS (1)
  - Pregnancy [Unknown]
